FAERS Safety Report 6538723-0 (Version None)
Quarter: 2010Q1

REPORT INFORMATION
  Report Type: 
  Country: None (occurrence: None)
  Receive Date: 20100114
  Receipt Date: 20100114
  Transmission Date: 20100710
  Serious: Yes (Hospitalization)
  Sender: FDA-Public Use
  Company Number: None

PATIENT
  Age: 11 Year
  Sex: Male
  Weight: 8 kg

DRUGS (11)
  1. VINCRISTINE [Suspect]
     Indication: LYMPHOCYTIC LEUKAEMIA
     Dosage: 400 MCG, 1 WEEK, INTRAVENOUS
     Route: 042
     Dates: start: 20080731, end: 20080821
  2. LANVIS [Suspect]
     Indication: LYMPHOCYTIC LEUKAEMIA
     Dosage: 20 MG, UNKNOWN, ORAL
     Route: 048
     Dates: start: 20080731, end: 20080828
  3. CERUBIDINE [Suspect]
     Indication: LYMPHOCYTIC LEUKAEMIA
     Dosage: 8500 MCG, 1 WEEK, UNKNOWN
     Dates: start: 20080731, end: 20080821
  4. (ENDOXAN /00021101/) [Suspect]
     Indication: LYMPHOCYTIC LEUKAEMIA
     Dosage: 140 MG, UNKNOWN, INTRAVENOUS
     Route: 042
     Dates: start: 20080904, end: 20080914
  5. CYTARABINE [Suspect]
     Indication: LYMPHOCYTIC LEUKAEMIA
     Dosage: 21 MG, 4 WEEK, INTRAVENOUS
     Route: 042
     Dates: start: 20080801, end: 20080825
  6. CYTARABINE [Suspect]
     Indication: LYMPHOCYTIC LEUKAEMIA
     Dosage: 15 MG (1 YEAR) INTRATHECAL
     Route: 037
     Dates: start: 20080731, end: 20080731
  7. (KIDROLASE) [Suspect]
     Indication: LYMPHOCYTIC LEUKAEMIA
     Dosage: 678 IU, UNKNOWN, INTRAVENOUS
     Route: 042
     Dates: start: 20080731, end: 20080731
  8. METHYLPREDNISOLONE [Concomitant]
  9. DEXAMETHASONE [Concomitant]
  10. BRICANYL [Concomitant]
  11. (CORTANCYL) [Concomitant]

REACTIONS (4)
  - APLASIA [None]
  - BLOOD CULTURE POSITIVE [None]
  - ENTEROCOCCAL INFECTION [None]
  - STAPHYLOCOCCAL INFECTION [None]
